FAERS Safety Report 16530035 (Version 3)
Quarter: 2019Q3

REPORT INFORMATION
  Report Type: Spontaneous
  Country: US (occurrence: US)
  Receive Date: 20190704
  Receipt Date: 20190927
  Transmission Date: 20191004
  Serious: Yes (Other)
  Sender: FDA-Public Use
  Company Number: US-009507513-1809USA010462

PATIENT
  Sex: Male
  Weight: 86.17 kg

DRUGS (4)
  1. ZOSTAVAX [Suspect]
     Active Substance: VARICELLA-ZOSTER VIRUS STRAIN OKA/MERCK LIVE ANTIGEN
     Indication: PROPHYLAXIS
  2. FENOFIBRATE. [Concomitant]
     Active Substance: FENOFIBRATE
     Indication: CARDIAC DISORDER
     Dosage: 160 MILLIGRAM
     Dates: start: 2010
  3. ZOSTAVAX [Suspect]
     Active Substance: VARICELLA-ZOSTER VIRUS STRAIN OKA/MERCK LIVE ANTIGEN
     Indication: PROPHYLAXIS
     Dosage: .65 MILLILITER
     Route: 058
     Dates: start: 20160817
  4. STERILE DILUENT (WATER) [Suspect]
     Active Substance: WATER
     Dosage: 0.7 MILLILITER, ONCE
     Dates: start: 20160817, end: 20160817

REACTIONS (4)
  - Vaccination failure [Recovering/Resolving]
  - Adverse event [Unknown]
  - Disseminated varicella zoster vaccine virus infection [Unknown]
  - Herpes zoster [Recovering/Resolving]

NARRATIVE: CASE EVENT DATE: 20160831
